FAERS Safety Report 8966363 (Version 1)
Quarter: 2012Q4

REPORT INFORMATION
  Report Type: Spontaneous
  Country: US (occurrence: None)
  Receive Date: 20121203
  Receipt Date: 20121203
  Transmission Date: 20130627
  Serious: Yes (Other)
  Sender: FDA-Public Use
  Company Number: 2012033796

PATIENT
  Age: FEW None
  Sex: Female

DRUGS (5)
  1. HIZENTRA [Suspect]
  2. BENADRYL (DIPHENHYDRAMINE HYDROCHLORIDE) [Concomitant]
  3. DECADRON (DEXAMETHASONE) [Concomitant]
  4. SOLU-MEDROL (METHYLPREDNISOLONE SODIUM SUCCINATE) [Concomitant]
  5. ALKA-SELTZER (ACETYLSALICYLIC ACID) [Concomitant]

REACTIONS (1)
  - Demyelinating polyneuropathy [None]
